FAERS Safety Report 21613440 (Version 1)
Quarter: 2022Q4

REPORT INFORMATION
  Report Type: Report from Study
  Country: GB (occurrence: GB)
  Receive Date: 20221118
  Receipt Date: 20221118
  Transmission Date: 20230113
  Serious: Yes (Hospitalization, Other)
  Sender: FDA-Public Use
  Company Number: None

PATIENT
  Age: 66 Year
  Sex: Male

DRUGS (16)
  1. DEXAMETHASONE [Suspect]
     Active Substance: DEXAMETHASONE
     Indication: Plasma cell myeloma
     Dosage: UNIT DOSE : 20 MG, THERAPY DURATION : 21 DAYS
     Route: 048
     Dates: start: 20180816, end: 20190727
  2. DEXAMETHASONE [Suspect]
     Active Substance: DEXAMETHASONE
     Dosage: UNIT DOSE : 20 MG, THERAPY DURATION : 21 DAYS,THERAPY END DATE : NOT ASKED
     Route: 048
     Dates: start: 20180726
  3. DEXAMETHASONE [Suspect]
     Active Substance: DEXAMETHASONE
     Dosage: UNIT DOSE: 20 MG,THERAPY END DATE : NOT ASKED
     Route: 048
     Dates: start: 20180809
  4. DEXAMETHASONE [Suspect]
     Active Substance: DEXAMETHASONE
     Dosage: FREQUENCY TEXT: NOT PROVIDED DEXAMETHASONE 40 MILLIGRAM ON 06-AUG-2015, 13-AUG-2015, 20-AUG-2015 AND
     Route: 048
     Dates: start: 20150806
  5. DEXAMETHASONE [Suspect]
     Active Substance: DEXAMETHASONE
     Dosage: FREQUENCY TEXT: NOT PROVIDED,20 MILLIGRAM, UNIT DOSE : 20 MG,THERAPY END DATE : NOT ASKED
     Route: 048
     Dates: start: 20171116
  6. DEXAMETHASONE [Suspect]
     Active Substance: DEXAMETHASONE
     Dosage: FREQUENCY TEXT: NOT PROVIDED, 20 MILLIGRAM, UNIT DOSE : 20 MG,THERAPY END DATE : NOT ASKED
     Route: 048
     Dates: start: 20150806
  7. DEXAMETHASONE [Suspect]
     Active Substance: DEXAMETHASONE
     Dosage: 20 MILLIGRAM, UNIT DOSE : 20 MG,THERAPY END DATE : NOT ASKED
     Route: 048
     Dates: start: 20180802
  8. POMALIDOMIDE [Suspect]
     Active Substance: POMALIDOMIDE
     Indication: Plasma cell myeloma
     Dosage: 3 MILLIGRAM, UNIT DOSE :3 MG, THERAPY DURATION : 20 DAYS
     Route: 048
     Dates: start: 20191003, end: 20191023
  9. POMALIDOMIDE [Suspect]
     Active Substance: POMALIDOMIDE
     Dosage: 3 MILLIGRAM, UNIT DOSE :3 MG, THERAPY DURATION : 20 DAYS
     Route: 048
     Dates: start: 20150806, end: 20200113
  10. POMALIDOMIDE [Suspect]
     Active Substance: POMALIDOMIDE
     Dosage: 2 MILLIGRAM, UNIT DOSE :2 MG, THERAPY DURATION : 20 DAYS
     Route: 048
     Dates: start: 20200321, end: 20200410
  11. POMALIDOMIDE [Suspect]
     Active Substance: POMALIDOMIDE
     Dosage: 3 MILLIGRAM, UNIT DOSE :3 MG, THERAPY DURATION : 20 DAYS
     Route: 048
     Dates: start: 20191003, end: 20191023
  12. POMALIDOMIDE [Suspect]
     Active Substance: POMALIDOMIDE
     Dosage: FREQUENCY TEXT: NOT PROVIDED 4 MILLIGRAM, UNIT DOSE :4 MG, THERAPY DURATION : 20 DAYS
     Route: 048
     Dates: start: 20171116, end: 20171206
  13. POMALIDOMIDE [Suspect]
     Active Substance: POMALIDOMIDE
     Dosage: 5 MILLIGRAM, UNIT DOSE :5 MG, THERAPY DURATION : 20 DAYS
     Route: 048
     Dates: start: 20190706, end: 20190726
  14. POMALIDOMIDE [Suspect]
     Active Substance: POMALIDOMIDE
     Dosage: FREQUENCY TEXT: NOT PROVIDED 4 MILLIGRAM (27-AUG-2015 - 02-SEP-2015) - REST PERIOD, UNIT DOSE :4 MG,
     Route: 048
     Dates: start: 20150806, end: 20150826
  15. POMALIDOMIDE [Suspect]
     Active Substance: POMALIDOMIDE
     Dosage: 4 MILLIGRAM,(16-AUG-2018 - 22-AUG-2018)- REST PERIOD, UNIT DOSE :4 MG, THERAPY DURATION : 20 DAYS
     Route: 048
     Dates: start: 20180726, end: 20180815
  16. COTRIMOXAZOLE [Concomitant]
     Active Substance: SULFAMETHOXAZOLE\TRIMETHOPRIM
     Indication: Infection prophylaxis
     Dosage: 480 MILLIGRAM DAILY;
     Route: 065
     Dates: start: 20160712

REACTIONS (6)
  - Renal impairment [Not Recovered/Not Resolved]
  - Thrombocytopenia [Unknown]
  - Neutropenia [Recovering/Resolving]
  - Peripheral sensory neuropathy [Recovering/Resolving]
  - Thrombocytopenia [Recovered/Resolved]
  - Neutropenic sepsis [Recovered/Resolved]

NARRATIVE: CASE EVENT DATE: 20170721
